FAERS Safety Report 13276048 (Version 1)
Quarter: 2017Q1

REPORT INFORMATION
  Report Type: Spontaneous
  Country: SE (occurrence: SE)
  Receive Date: 20170228
  Receipt Date: 20170228
  Transmission Date: 20170428
  Serious: Yes (Hospitalization)
  Sender: FDA-Public Use
  Company Number: SE-ROCHE-1899494

PATIENT
  Age: 31 Year
  Sex: Female

DRUGS (2)
  1. VALIUM [Suspect]
     Active Substance: DIAZEPAM
     Indication: NERVOUSNESS
     Route: 065
  2. CONLUTEN [Suspect]
     Active Substance: MESTRANOL\NORETHINDRONE
     Indication: CONTRACEPTION
     Route: 065
     Dates: start: 196412, end: 196606

REACTIONS (3)
  - Cholestasis [Recovered/Resolved]
  - Drug-induced liver injury [Recovered/Resolved]
  - Cholecystitis [Recovered/Resolved]

NARRATIVE: CASE EVENT DATE: 19661215
